FAERS Safety Report 6801006-5 (Version None)
Quarter: 2010Q2

REPORT INFORMATION
  Report Type: 
  Country: None (occurrence: None)
  Receive Date: 20100629
  Receipt Date: 20100616
  Transmission Date: 20101027
  Serious: Yes (Life-Threatening)
  Sender: FDA-Public Use
  Company Number: GB-ELI_LILLY_AND_COMPANY-GB201006004367

PATIENT
  Sex: Female

DRUGS (2)
  1. FLUOXETINE [Suspect]
     Indication: SEASONAL AFFECTIVE DISORDER
  2. ALLI [Concomitant]
     Indication: OBESITY

REACTIONS (2)
  - DEPRESSION SUICIDAL [None]
  - SELF-INJURIOUS IDEATION [None]
